FAERS Safety Report 4825215-X (Version None)
Quarter: 2005Q4

REPORT INFORMATION
  Report Type: 
  Country: None (occurrence: None)
  Receive Date: 20051109
  Receipt Date: 20051025
  Transmission Date: 20060501
  Serious: Yes (Death, Other)
  Sender: FDA-Public Use
  Company Number: 2005BH002636

PATIENT
  Age: 76 Year
  Sex: Female

DRUGS (11)
  1. DEXAMETHASONE [Suspect]
     Indication: MULTIPLE MYELOMA
     Dosage: 40 MG; EVERY DAY; PO
     Route: 048
     Dates: start: 20040901, end: 20040909
  2. VINCRISTINE SULFATE [Suspect]
     Indication: MULTIPLE MYELOMA
     Dates: start: 20040901
  3. LORAZEPAM [Suspect]
     Dosage: 500 UG; EVERY DAY; PO
     Route: 048
     Dates: start: 20040830, end: 20040913
  4. EFFEXOR [Suspect]
     Dosage: 37.5 MG; EVERY DAY; PO
     Route: 048
     Dates: start: 20040831, end: 20040913
  5. DOXORUBICIN HCL [Suspect]
     Indication: MULTIPLE MYELOMA
     Dosage: 30 MG; EVERY DAY; IV
     Route: 042
     Dates: start: 20040901, end: 20040901
  6. MELPHALAN (MELPHALAN) [Suspect]
     Indication: MULTIPLE MYELOMA
     Dates: start: 20010101
  7. RABEPRAZOLE SODIUM [Suspect]
     Dosage: 1 TAB; EVERY DAY; PO
     Route: 048
     Dates: start: 20040831, end: 20040913
  8. PREDNISONE [Suspect]
     Indication: MULTIPLE MYELOMA
     Dates: start: 20010101
  9. SOLUPRED (PREDNISOLONE SODIUM SULFOBENZOATE) [Suspect]
     Dosage: 20 MG; EVERY DAY; PO
     Route: 048
     Dates: start: 20040831, end: 20040913
  10. THALIDOMIDE (THALIDOMIDE) [Suspect]
     Indication: MULTIPLE MYELOMA
     Dosage: 200 MG; EVERY DAY; PO
     Route: 048
     Dates: start: 20040830, end: 20040903
  11. ZOMETA [Suspect]
     Dosage: 4 MG; EVERY DAY; IV
     Route: 042
     Dates: start: 20040831, end: 20040831

REACTIONS (7)
  - COMA [None]
  - CONDITION AGGRAVATED [None]
  - LEUKOPENIA [None]
  - LUNG INFECTION PSEUDOMONAL [None]
  - NEUTROPENIA [None]
  - PSEUDOMONAL SEPSIS [None]
  - THROMBOCYTOPENIA [None]
